FAERS Safety Report 23237247 (Version 3)
Quarter: 2024Q3

REPORT INFORMATION
  Report Type: Spontaneous
  Country: US (occurrence: US)
  Receive Date: 20231128
  Receipt Date: 20240911
  Transmission Date: 20241017
  Serious: No
  Sender: SANOFI AVENTIS
  Company Number: US-SA-SAC20231122000643

PATIENT
  Age: 38 Year
  Sex: Male

DRUGS (2)
  1. DUPIXENT [Suspect]
     Active Substance: DUPILUMAB
     Indication: Dermatitis atopic
     Dosage: 600 MG, 1X
     Route: 058
     Dates: start: 202310, end: 202310
  2. DUPIXENT [Suspect]
     Active Substance: DUPILUMAB
     Indication: Eczema
     Dosage: 300 MG, QOW
     Route: 058
     Dates: start: 2023

REACTIONS (8)
  - Lacrimation increased [Unknown]
  - Conjunctivitis [Recovered/Resolved]
  - Eye pruritus [Recovered/Resolved]
  - Eye discharge [Recovered/Resolved]
  - Vision blurred [Recovered/Resolved]
  - Madarosis [Recovered/Resolved]
  - Dry eye [Recovered/Resolved]
  - Product dose omission in error [Unknown]

NARRATIVE: CASE EVENT DATE: 20231001
